FAERS Safety Report 17841554 (Version 2)
Quarter: 2020Q4

REPORT INFORMATION
  Report Type: Spontaneous
  Country: GB (occurrence: GB)
  Receive Date: 20200529
  Receipt Date: 20201229
  Transmission Date: 20210113
  Serious: Yes (Hospitalization, Other)
  Sender: FDA-Public Use
  Company Number: GB-BAUSCH-BL-2020-015418

PATIENT
  Age: 59 Year
  Sex: Male

DRUGS (25)
  1. CLOPIXOL [Suspect]
     Active Substance: ZUCLOPENTHIXOL
     Dosage: WEEKLY
     Route: 030
     Dates: start: 20040217, end: 20040601
  2. RISPERIDONE. [Suspect]
     Active Substance: RISPERIDONE
     Route: 065
  3. CLOZARIL [Suspect]
     Active Substance: CLOZAPINE
     Dosage: PM
     Route: 065
  4. CLOZARIL [Suspect]
     Active Substance: CLOZAPINE
     Route: 065
  5. CLOZARIL [Suspect]
     Active Substance: CLOZAPINE
     Dosage: AM
     Route: 065
     Dates: start: 2011
  6. CHLORPROMAZINE. [Suspect]
     Active Substance: CHLORPROMAZINE
     Indication: PRODUCT USED FOR UNKNOWN INDICATION
     Route: 065
  7. CLOPIXOL [Suspect]
     Active Substance: ZUCLOPENTHIXOL
     Indication: PRODUCT USED FOR UNKNOWN INDICATION
     Route: 065
     Dates: start: 20030204, end: 20040217
  8. CLOZARIL [Suspect]
     Active Substance: CLOZAPINE
     Dosage: PM
     Route: 065
  9. CLOZARIL [Suspect]
     Active Substance: CLOZAPINE
     Route: 048
     Dates: start: 20191209, end: 20191223
  10. OLANZAPINE. [Suspect]
     Active Substance: OLANZAPINE
     Route: 065
  11. RISPERIDONE. [Suspect]
     Active Substance: RISPERIDONE
     Indication: PRODUCT USED FOR UNKNOWN INDICATION
     Route: 065
  12. CLOZARIL [Suspect]
     Active Substance: CLOZAPINE
     Indication: SCHIZOPHRENIA
     Route: 048
     Dates: start: 20100823
  13. OLANZAPINE. [Suspect]
     Active Substance: OLANZAPINE
     Route: 065
     Dates: start: 20060704
  14. RISPERIDONE. [Suspect]
     Active Substance: RISPERIDONE
     Route: 065
  15. OLANZAPINE. [Suspect]
     Active Substance: OLANZAPINE
     Route: 065
     Dates: start: 20080823
  16. LORAZEPAM. [Suspect]
     Active Substance: LORAZEPAM
     Indication: PRODUCT USED FOR UNKNOWN INDICATION
     Route: 048
  17. HALOPERIDOL. [Suspect]
     Active Substance: HALOPERIDOL
     Indication: PRODUCT USED FOR UNKNOWN INDICATION
     Route: 065
  18. CLOPIXOL [Suspect]
     Active Substance: ZUCLOPENTHIXOL
     Route: 065
     Dates: start: 20040601, end: 20041018
  19. LITHIUM. [Suspect]
     Active Substance: LITHIUM
     Indication: PRODUCT USED FOR UNKNOWN INDICATION
     Route: 065
  20. CLOZARIL [Suspect]
     Active Substance: CLOZAPINE
     Dosage: AM
     Route: 065
  21. ARIPIPRAZOL [Suspect]
     Active Substance: ARIPIPRAZOLE
     Indication: PRODUCT USED FOR UNKNOWN INDICATION
     Route: 065
  22. CLOPIXOL [Suspect]
     Active Substance: ZUCLOPENTHIXOL
     Dosage: 300 MILLIGRAM IM WEEKLY
     Route: 030
     Dates: start: 20091009
  23. CLOPIXOL [Suspect]
     Active Substance: ZUCLOPENTHIXOL
     Route: 065
  24. CLOZARIL [Suspect]
     Active Substance: CLOZAPINE
     Dosage: MIDDAY
     Route: 065
  25. OLANZAPINE. [Suspect]
     Active Substance: OLANZAPINE
     Indication: PRODUCT USED FOR UNKNOWN INDICATION
     Route: 065
     Dates: start: 20040217

REACTIONS (11)
  - Leukopenia [Recovered/Resolved]
  - Psychotic disorder [Recovered/Resolved]
  - Fatigue [Unknown]
  - Hallucination, auditory [Unknown]
  - Affective disorder [Recovered/Resolved]
  - Delusion of grandeur [Unknown]
  - Platelet count decreased [Recovered/Resolved]
  - Off label use [Unknown]
  - Extrapyramidal disorder [Unknown]
  - Schizophrenia [Not Recovered/Not Resolved]
  - Neutropenia [Recovered/Resolved]

NARRATIVE: CASE EVENT DATE: 2019
